FAERS Safety Report 6727017-6 (Version None)
Quarter: 2010Q2

REPORT INFORMATION
  Report Type: 
  Country: None (occurrence: None)
  Receive Date: 20100517
  Receipt Date: 20100505
  Transmission Date: 20101027
  Serious: Yes (Hospitalization, Disabling, Other)
  Sender: FDA-Public Use
  Company Number: CH-JNJFOC-20100505310

PATIENT
  Age: 38 Year
  Sex: Female

DRUGS (3)
  1. REMICADE [Suspect]
     Indication: PSORIASIS
     Route: 042
  2. SOLU-MEDROL [Concomitant]
     Indication: PREMEDICATION
     Route: 042
  3. TAVEGYL [Concomitant]
     Indication: PREMEDICATION
     Route: 042

REACTIONS (5)
  - ANGIOEDEMA [None]
  - BRONCHOSPASM [None]
  - HYPERSENSITIVITY [None]
  - TOXIC SKIN ERUPTION [None]
  - URTICARIA [None]
